FAERS Safety Report 9651842 (Version 1)
Quarter: 2013Q4

REPORT INFORMATION
  Report Type: Spontaneous
  Country: US (occurrence: US)
  Receive Date: 20131029
  Receipt Date: 20131029
  Transmission Date: 20140711
  Serious: No
  Sender: FDA-Public Use
  Company Number: US-ENDO PHARMACEUTICALS INC.-LACT20110012

PATIENT
  Age: 79 Year
  Sex: Male
  Weight: 74.91 kg

DRUGS (2)
  1. LACTULOSE ORAL SOLUTION [Suspect]
     Indication: CONSTIPATION
     Route: 048
     Dates: start: 201108, end: 2011
  2. IRON [Concomitant]
     Indication: BLOOD IRON DECREASED
     Dosage: UNK
     Route: 065

REACTIONS (2)
  - Flatulence [Unknown]
  - Drug ineffective [Recovered/Resolved]
